FAERS Safety Report 11227669 (Version 1)
Quarter: 2015Q2

REPORT INFORMATION
  Report Type: Spontaneous
  Country: US (occurrence: None)
  Receive Date: 20150626
  Receipt Date: 20150626
  Transmission Date: 20150821
  Serious: Yes (Other)
  Sender: FDA-Public Use
  Company Number: None

PATIENT
  Age: 26 Year
  Sex: Female
  Weight: 49.9 kg

DRUGS (2)
  1. BUPRENORPHINE [Concomitant]
     Active Substance: BUPRENORPHINE
  2. MONISTAT 1 COMBINATION PACK [Suspect]
     Active Substance: MICONAZOLE NITRATE
     Indication: FUNGAL INFECTION
     Route: 067
     Dates: start: 20150616, end: 20150617

REACTIONS (5)
  - Skin exfoliation [None]
  - Vulvovaginal burning sensation [None]
  - Vulvovaginal pruritus [None]
  - Thermal burn [None]
  - Vulvovaginal swelling [None]

NARRATIVE: CASE EVENT DATE: 20150616
